FAERS Safety Report 6526535-3 (Version None)
Quarter: 2009Q4

REPORT INFORMATION
  Report Type: 
  Country: None (occurrence: None)
  Receive Date: 20091229
  Receipt Date: 20091215
  Transmission Date: 20100525
  Serious: Yes (Death)
  Sender: FDA-Public Use
  Company Number: 8053195

PATIENT
  Sex: Male

DRUGS (3)
  1. KEPPRA [Suspect]
     Indication: EPILEPSY
     Dosage: SEE IMAGE
     Route: 064
     Dates: start: 20080923, end: 20090402
  2. KEPPRA [Suspect]
     Indication: EPILEPSY
     Dosage: SEE IMAGE
     Route: 064
     Dates: start: 20081010, end: 20090402
  3. KEPPRA [Suspect]
     Indication: EPILEPSY
     Dosage: SEE IMAGE
     Route: 064
     Dates: start: 20090201, end: 20090402

REACTIONS (14)
  - ABORTION SPONTANEOUS [None]
  - ANAEMIA NEONATAL [None]
  - BREECH PRESENTATION [None]
  - CAESAREAN SECTION [None]
  - EFFUSION [None]
  - EXTRAMEDULLARY HAEMOPOIESIS [None]
  - FOETAL GROWTH RETARDATION [None]
  - INTRA-UTERINE DEATH [None]
  - MATERNAL DRUGS AFFECTING FOETUS [None]
  - MICROSTOMIA [None]
  - PERICARDIAL HAEMORRHAGE [None]
  - PLACENTAL DISORDER [None]
  - PULMONARY HYPOPLASIA [None]
  - SUBGALEAL HAEMATOMA [None]
